FAERS Safety Report 13717004 (Version 1)
Quarter: 2017Q3

REPORT INFORMATION
  Report Type: Report from Study
  Country: CN (occurrence: CN)
  Receive Date: 20170705
  Receipt Date: 20170705
  Transmission Date: 20171127
  Serious: Yes (Death)
  Sender: FDA-Public Use
  Company Number: CN-ROCHE-1931309

PATIENT
  Age: 71 Year
  Sex: Male
  Weight: 63 kg

DRUGS (2)
  1. WARFARIN [Concomitant]
     Active Substance: WARFARIN
     Route: 065
     Dates: start: 2003, end: 20170502
  2. ATEZOLIZUMAB. [Suspect]
     Active Substance: ATEZOLIZUMAB
     Indication: NEOPLASM
     Dosage: MOST RECENT DOSE OF ATEZOLIZUMAB WAS ON 12/APR/2017 AT 1200 MG
     Route: 042
     Dates: start: 20161114

REACTIONS (1)
  - Death [Fatal]

NARRATIVE: CASE EVENT DATE: 20170503
